FAERS Safety Report 17029015 (Version 2)
Quarter: 2019Q4

REPORT INFORMATION
  Report Type: Spontaneous
  Country: ID (occurrence: ID)
  Receive Date: 20191114
  Receipt Date: 20191216
  Transmission Date: 20200122
  Serious: Yes (Death, Other)
  Sender: FDA-Public Use
  Company Number: ID-SA-2019SA314085

PATIENT
  Age: 3 Year
  Sex: Male
  Weight: 10 kg

DRUGS (3)
  1. METHYLPREDNISOLONE. [Concomitant]
     Active Substance: METHYLPREDNISOLONE
     Dosage: 12 MG
     Dates: start: 20180627
  2. CETIRIZINE [Concomitant]
     Active Substance: CETIRIZINE HYDROCHLORIDE
     Dosage: 2.5 MG
     Dates: start: 20180627
  3. IMIGLUCERASE [Suspect]
     Active Substance: IMIGLUCERASE
     Indication: GAUCHER^S DISEASE TYPE III
     Dosage: 800 U, QOW
     Route: 042
     Dates: start: 20190718, end: 20191109

REACTIONS (6)
  - Septic shock [Fatal]
  - Dyskinesia [Not Recovered/Not Resolved]
  - Meningitis bacterial [Fatal]
  - Pyrexia [Fatal]
  - Sepsis [Fatal]
  - Depressed level of consciousness [Recovered/Resolved]

NARRATIVE: CASE EVENT DATE: 20190731
